FAERS Safety Report 5204084-2 (Version None)
Quarter: 2007Q1

REPORT INFORMATION
  Report Type: 
  Country: None (occurrence: None)
  Receive Date: 20070110
  Receipt Date: 20051114
  Transmission Date: 20070707
  Serious: No
  Sender: FDA-Public Use
  Company Number: US-BRISTOL-MYERS SQUIBB COMPANY-13179643

PATIENT
  Sex: Female
  Weight: 73 kg

DRUGS (2)
  1. ABILIFY [Suspect]
     Indication: MOOD ALTERED
  2. XANAX [Concomitant]

REACTIONS (2)
  - FATIGUE [None]
  - FEELING ABNORMAL [None]
